FAERS Safety Report 4742408-0 (Version None)
Quarter: 2005Q3

REPORT INFORMATION
  Report Type: 
  Country: None (occurrence: None)
  Receive Date: 20050808
  Receipt Date: 20050726
  Transmission Date: 20060218
  Serious: Yes (Hospitalization)
  Sender: FDA-Public Use
  Company Number: GBS050617692

PATIENT
  Age: 9 Year
  Sex: Male
  Weight: 27 kg

DRUGS (2)
  1. STRATTERA [Suspect]
     Indication: ATTENTION DEFICIT/HYPERACTIVITY DISORDER
     Dosage: 40 MG DAY
     Dates: start: 20040809
  2. MELATONIN [Concomitant]

REACTIONS (4)
  - BLOOD ALBUMIN INCREASED [None]
  - GLOMERULONEPHRITIS [None]
  - NEPHROTIC SYNDROME [None]
  - PHARYNGOLARYNGEAL PAIN [None]
